FAERS Safety Report 5012767-2 (Version None)
Quarter: 2006Q2

REPORT INFORMATION
  Report Type: 
  Country: None (occurrence: None)
  Receive Date: 20060530
  Receipt Date: 20060209
  Transmission Date: 20061013
  Serious: Yes (Other)
  Sender: FDA-Public Use
  Company Number: US-BRISTOL-MYERS SQUIBB COMPANY-13278916

PATIENT
  Age: 40 Year
  Sex: Male

DRUGS (4)
  1. ERBITUX [Suspect]
     Indication: RECTAL CANCER METASTATIC
     Route: 042
  2. FLUOROURACIL [Concomitant]
  3. IRINOTECAN HCL [Concomitant]
  4. LEUCOVORIN [Concomitant]

REACTIONS (1)
  - DERMATITIS ACNEIFORM [None]
